FAERS Safety Report 19242269 (Version 1)
Quarter: 2021Q2

REPORT INFORMATION
  Report Type: Spontaneous
  Country: US (occurrence: US)
  Receive Date: 20210511
  Receipt Date: 20210511
  Transmission Date: 20210717
  Serious: Yes (Life-Threatening, Hospitalization, Disabling)
  Sender: FDA-Public Use
  Company Number: None

PATIENT
  Age: 59 Year
  Sex: Female
  Weight: 100.97 kg

DRUGS (17)
  1. GABAPENTIN. [Concomitant]
     Active Substance: GABAPENTIN
  2. VALSARTAN. [Concomitant]
     Active Substance: VALSARTAN
  3. ESTER OMEGA [Concomitant]
  4. LANTUS [Concomitant]
     Active Substance: INSULIN GLARGINE
  5. WELCHOL [Suspect]
     Active Substance: COLESEVELAM HYDROCHLORIDE
     Indication: BLOOD CHOLESTEROL INCREASED
     Dosage: ?          QUANTITY:3 DF DOSAGE FORM;?
     Route: 048
     Dates: start: 20020202, end: 20190107
  6. ASPIRIN 81 MG [Concomitant]
     Active Substance: ASPIRIN
  7. CYCLOBENZAPRINE. [Concomitant]
     Active Substance: CYCLOBENZAPRINE
  8. PROBIOTIC [Concomitant]
     Active Substance: PROBIOTICS NOS
  9. PRALUENT [Suspect]
     Active Substance: ALIROCUMAB
  10. MECLIZINE [Concomitant]
     Active Substance: MECLIZINE HYDROCHLORIDE
  11. DEXILANT [Concomitant]
     Active Substance: DEXLANSOPRAZOLE
  12. NOVOLOG [Concomitant]
     Active Substance: INSULIN ASPART
  13. METFORMEN [Concomitant]
  14. METOPROLOL TARTRATE. [Concomitant]
     Active Substance: METOPROLOL TARTRATE
  15. VITAMIN D2 [Concomitant]
     Active Substance: ERGOCALCIFEROL
  16. VITAMIN C [Concomitant]
     Active Substance: ASCORBIC ACID
  17. VISION VIT 50 + OVER [Concomitant]

REACTIONS (6)
  - Coronary artery disease [None]
  - Anxiety [None]
  - Malaise [None]
  - Therapy interrupted [None]
  - Pain [None]
  - Diabetes mellitus inadequate control [None]

NARRATIVE: CASE EVENT DATE: 20181219
